FAERS Safety Report 11841324 (Version 3)
Quarter: 2016Q1

REPORT INFORMATION
  Report Type: Report from Study
  Country: US (occurrence: US)
  Receive Date: 20151216
  Receipt Date: 20160308
  Transmission Date: 20160526
  Serious: Yes (Death, Life-Threatening, Disabling, Other)
  Sender: FDA-Public Use
  Company Number: US-AMGEN-USACT2015134235

PATIENT
  Age: 65 Year
  Sex: Male
  Weight: 92.2 kg

DRUGS (1)
  1. CARFILZOMIB [Suspect]
     Active Substance: CARFILZOMIB
     Indication: MANTLE CELL LYMPHOMA
     Dosage: 40 MG/M2, PER CHEMO REGIM
     Route: 065
     Dates: start: 20151022

REACTIONS (3)
  - Gastrointestinal haemorrhage [Fatal]
  - Graft versus host disease in gastrointestinal tract [Fatal]
  - Intestinal obstruction [Fatal]

NARRATIVE: CASE EVENT DATE: 20151111
